FAERS Safety Report 12406604 (Version 2)
Quarter: 2016Q2

REPORT INFORMATION
  Report Type: Spontaneous
  Country: VE (occurrence: VE)
  Receive Date: 20160526
  Receipt Date: 20160623
  Transmission Date: 20160815
  Serious: Yes (Life-Threatening, Hospitalization)
  Sender: FDA-Public Use
  Company Number: PHHY2014VE134585

PATIENT
  Age: 64 Year
  Sex: Male

DRUGS (7)
  1. CARVEDILOL. [Concomitant]
     Active Substance: CARVEDILOL
     Indication: CARDIAC DISORDER
     Dosage: 5 MG, QD
     Route: 065
     Dates: start: 201504
  2. TRILEPTAL [Suspect]
     Active Substance: OXCARBAZEPINE
     Dosage: 900 MG, UNK
     Route: 048
  3. TRILEPTAL [Suspect]
     Active Substance: OXCARBAZEPINE
     Dosage: 1200 MG (TABLET STRENGTH: 300 MG), QD
     Route: 048
  4. COVERSYL [Concomitant]
     Active Substance: PERINDOPRIL
     Indication: CARDIAC DISORDER
     Dosage: 1 DF (ONE TABLET), QD
     Route: 065
     Dates: start: 20150331
  5. AMLODIPINE [Concomitant]
     Active Substance: AMLODIPINE BESYLATE
     Indication: BLOOD PRESSURE ABNORMAL
     Dosage: 5 MG, QD (STARTED 8 YEARS AGO)
     Route: 065
     Dates: start: 2007
  6. TRILEPTAL [Suspect]
     Active Substance: OXCARBAZEPINE
     Dosage: 900 MG (TABLET STRENGTH: 300 MG), QD
     Route: 048
  7. TRILEPTAL [Suspect]
     Active Substance: OXCARBAZEPINE
     Indication: EPILEPSY
     Dosage: 1200 MG (TABLET STRENGTH: 600 MG), QD
     Route: 048
     Dates: start: 2007

REACTIONS (7)
  - Seizure [Unknown]
  - Terminal state [Unknown]
  - Gallbladder pain [Unknown]
  - Gallbladder disorder [Unknown]
  - Fall [Recovered/Resolved]
  - Pain [Unknown]
  - Head injury [Recovered/Resolved]

NARRATIVE: CASE EVENT DATE: 201412
